FAERS Safety Report 20487003 (Version 1)
Quarter: 2022Q1

REPORT INFORMATION
  Report Type: Spontaneous
  Country: US (occurrence: US)
  Receive Date: 20220217
  Receipt Date: 20220217
  Transmission Date: 20220423
  Serious: Yes (Other)
  Sender: FDA-Public Use
  Company Number: US-GILEAD-2022-0570130

PATIENT
  Sex: Female

DRUGS (2)
  1. REMDESIVIR [Suspect]
     Active Substance: REMDESIVIR
     Indication: Product used for unknown indication
     Dosage: LOADING DOSE
     Route: 065
     Dates: start: 20220213, end: 20220213
  2. REMDESIVIR [Suspect]
     Active Substance: REMDESIVIR
     Dosage: UNK
     Route: 065
     Dates: start: 20220214

REACTIONS (1)
  - Anaphylactic reaction [Unknown]

NARRATIVE: CASE EVENT DATE: 20220214
